FAERS Safety Report 8819105 (Version 1)
Quarter: 2012Q4

REPORT INFORMATION
  Report Type: 
  Country: JP (occurrence: JP)
  Receive Date: 20121001
  Receipt Date: 20121001
  Transmission Date: 20130627
  Serious: Yes (Other)
  Sender: FDA-Public Use
  Company Number: JP-JNJFOC-20120909755

PATIENT
  Age: 94 Year

DRUGS (3)
  1. RISPERDAL [Suspect]
     Indication: AGITATION
     Route: 048
  2. RISPERDAL [Suspect]
     Indication: RESTLESSNESS
     Route: 048
  3. ROHYPNOL [Interacting]
     Indication: INSOMNIA
     Route: 048

REACTIONS (3)
  - Persecutory delusion [Unknown]
  - Drug interaction [Unknown]
  - Agitation [Unknown]
